FAERS Safety Report 8897032 (Version 1)
Quarter: 2012Q4

REPORT INFORMATION
  Report Type: 
  Country: US (occurrence: US)
  Receive Date: 20121108
  Receipt Date: 20121108
  Transmission Date: 20130627
  Serious: No
  Sender: FDA-Public Use
  Company Number: US-AMGEN-USASP2012025359

PATIENT
  Sex: Female

DRUGS (11)
  1. ENBREL [Suspect]
     Indication: PRODUCT USED FOR UNKNOWN INDICATION
     Dosage: 50 mg, qwk
  2. PANTOPRAZOLE [Concomitant]
     Dosage: 20 mg, UNK
  3. ZYRTEC [Concomitant]
     Dosage: 10 mg, UNK
  4. SYNTHROID [Concomitant]
     Dosage: 25 mug, UNK
  5. VITAMIN B12                        /00056201/ [Concomitant]
     Dosage: 1000 mug, UNK
  6. LEVOTHYROXIN [Concomitant]
     Dosage: 100 mug, UNK
  7. GLIPIZIDE ER [Concomitant]
     Dosage: 2.5 mg, UNK
  8. LOSARTAN POTASSIUM [Concomitant]
     Dosage: 25 mg, UNK
  9. FISH OIL [Concomitant]
  10. VITAMIN D /00107901/ [Concomitant]
     Dosage: 1000 IU, UNK
  11. MULTIVITAMIN                       /00097801/ [Concomitant]

REACTIONS (2)
  - Alopecia [Unknown]
  - Infection [Recovered/Resolved]
